FAERS Safety Report 5924703-2 (Version None)
Quarter: 2008Q4

REPORT INFORMATION
  Report Type: 
  Country: None (occurrence: None)
  Receive Date: 20081016
  Receipt Date: 20081002
  Transmission Date: 20090506
  Serious: Yes (Hospitalization)
  Sender: FDA-Public Use
  Company Number: 02100-JPN-07-0451

PATIENT
  Age: 76 Year
  Sex: Male
  Weight: 57.7 kg

DRUGS (5)
  1. PLETAL [Suspect]
     Indication: CEREBRAL INFARCTION
     Dosage: UNKNOWN, ORAL, UNKNOWN; ORAL
     Route: 048
     Dates: start: 20051216, end: 20070722
  2. PLETAL [Suspect]
     Indication: CEREBRAL INFARCTION
     Dosage: UNKNOWN, ORAL, UNKNOWN; ORAL
     Route: 048
     Dates: start: 20070807
  3. PLETAL [Suspect]
     Indication: CEREBRAL INFARCTION
     Dosage: UNK, UNK, UNKNOWN, 81 MG QD; ORAL
     Dates: start: 20051216, end: 20070722
  4. PLETAL [Suspect]
     Indication: CEREBRAL INFARCTION
     Dosage: UNK, UNK, UNKNOWN, 81 MG QD; ORAL
     Dates: start: 20070807
  5. LOSARTAN POTASSIUM [Concomitant]

REACTIONS (3)
  - CALCULUS URETERIC [None]
  - HAEMATURIA [None]
  - INGUINAL HERNIA [None]
